FAERS Safety Report 6774800-7 (Version None)
Quarter: 2010Q2

REPORT INFORMATION
  Report Type: 
  Country: None (occurrence: None)
  Receive Date: 20100616
  Receipt Date: 20100616
  Transmission Date: 20101027
  Serious: No
  Sender: FDA-Public Use
  Company Number: None

PATIENT
  Age: 30 Year
  Sex: Female

DRUGS (3)
  1. DEMEROL [Suspect]
     Indication: PAIN
     Dosage: 200MG IV
     Route: 042
     Dates: start: 20100416, end: 20100416
  2. DEMEROL [Suspect]
     Indication: SEDATION
     Dosage: 200MG IV
     Route: 042
     Dates: start: 20100416, end: 20100416
  3. VERSED [Suspect]
     Dosage: 10MG IV
     Route: 042

REACTIONS (2)
  - AGGRESSION [None]
  - PROCEDURAL COMPLICATION [None]
